FAERS Safety Report 12724118 (Version 2)
Quarter: 2016Q3

REPORT INFORMATION
  Report Type: Report from Study
  Country: US (occurrence: US)
  Receive Date: 20160908
  Receipt Date: 20160913
  Transmission Date: 20161109
  Serious: Yes (Death, Hospitalization, Other)
  Sender: FDA-Public Use
  Company Number: US-JNJFOC-20160902415

PATIENT
  Age: 73 Year
  Sex: Female
  Weight: 108.86 kg

DRUGS (6)
  1. XARELTO [Suspect]
     Active Substance: RIVAROXABAN
     Indication: CARDIAC OPERATION
     Route: 048
  2. LASIX [Concomitant]
     Active Substance: FUROSEMIDE
     Route: 065
  3. TOPROL XL [Concomitant]
     Active Substance: METOPROLOL SUCCINATE
     Route: 065
  4. PRAVASTATIN. [Concomitant]
     Active Substance: PRAVASTATIN
     Route: 065
  5. COZAAR [Concomitant]
     Active Substance: LOSARTAN POTASSIUM
     Route: 065
  6. SOTALOL. [Concomitant]
     Active Substance: SOTALOL
     Route: 065

REACTIONS (8)
  - Arrhythmia [Unknown]
  - Myocardial infarction [Fatal]
  - Product use issue [Unknown]
  - Gastric ulcer [Unknown]
  - Renal impairment [Unknown]
  - Gallbladder disorder [Unknown]
  - Cardiac assistance device user [Unknown]
  - Off label use [Unknown]

NARRATIVE: CASE EVENT DATE: 2016
